FAERS Safety Report 18125738 (Version 1)
Quarter: 2020Q3

REPORT INFORMATION
  Report Type: Spontaneous
  Country: US (occurrence: US)
  Receive Date: 20200807
  Receipt Date: 20200807
  Transmission Date: 20201103
  Serious: Yes (Other)
  Sender: FDA-Public Use
  Company Number: US-VERTEX PHARMACEUTICALS-2020-016043

PATIENT
  Age: 26 Year
  Sex: Female

DRUGS (1)
  1. TRIKAFTA [Suspect]
     Active Substance: ELEXACAFTOR\IVACAFTOR\TEZACAFTOR
     Indication: CYSTIC FIBROSIS
     Dosage: UNK
     Route: 048

REACTIONS (5)
  - Blood bilirubin increased [Recovered/Resolved]
  - Cholecystitis acute [Recovered/Resolved]
  - Alanine aminotransferase increased [Recovered/Resolved]
  - Cholelithiasis [Recovered/Resolved]
  - Aspartate aminotransferase increased [Recovered/Resolved]
